FAERS Safety Report 10009443 (Version 1)
Quarter: 2014Q1

REPORT INFORMATION
  Report Type: Spontaneous
  Country: US (occurrence: US)
  Receive Date: 20140313
  Receipt Date: 20140313
  Transmission Date: 20141002
  Serious: No
  Sender: FDA-Public Use
  Company Number: US-INCYTE CORPORATION-2012IN001488

PATIENT
  Age: 70 Year
  Sex: Female

DRUGS (7)
  1. JAKAFI [Suspect]
     Dosage: 20 MG, QD
  2. TRILEPTAL [Concomitant]
     Dosage: 300 MG, UNK
  3. REGLAN [Concomitant]
     Dosage: 10 MG, UNK
  4. NEXIUM [Concomitant]
     Dosage: 40 MG, UNK
  5. PAXIL [Concomitant]
     Dosage: 20 MG, UNK
  6. AMBIEN [Concomitant]
     Dosage: 10 MG, UNK
  7. FISH OIL [Concomitant]

REACTIONS (1)
  - Neuropathy peripheral [Not Recovered/Not Resolved]
